FAERS Safety Report 15181789 (Version 2)
Quarter: 2018Q3

REPORT INFORMATION
  Report Type: Spontaneous
  Country: BR (occurrence: BR)
  Receive Date: 20180723
  Receipt Date: 20180921
  Transmission Date: 20181010
  Serious: Yes (Other)
  Sender: FDA-Public Use
  Company Number: BR-SAKK-2018SA196077AA

PATIENT
  Age: 72 Year
  Sex: Female

DRUGS (2)
  1. APIDRA [Suspect]
     Active Substance: INSULIN GLULISINE
     Indication: DIABETES MELLITUS
     Dosage: 4 IU, UNK
     Route: 058
     Dates: start: 20180716
  2. TOUJEO [Suspect]
     Active Substance: INSULIN GLARGINE
     Indication: PRODUCT USED FOR UNKNOWN INDICATION
     Dosage: 20 IU, UNK
     Route: 065
     Dates: start: 20180716

REACTIONS (5)
  - Diabetic metabolic decompensation [Unknown]
  - Cardiac failure [Unknown]
  - Arteriosclerosis coronary artery [Recovering/Resolving]
  - Nervousness [Unknown]
  - Medication error [Unknown]

NARRATIVE: CASE EVENT DATE: 20180716
